FAERS Safety Report 4660479-7 (Version None)
Quarter: 2005Q2

REPORT INFORMATION
  Report Type: 
  Country: None (occurrence: None)
  Receive Date: 20050512
  Receipt Date: 20050331
  Transmission Date: 20051028
  Serious: Yes (Hospitalization)
  Sender: FDA-Public Use
  Company Number: DE-GLAXOSMITHKLINE-D0046279A

PATIENT
  Age: 63 Year
  Sex: Female
  Weight: 70 kg

DRUGS (5)
  1. HYCAMTIN [Suspect]
     Dosage: 1.5MGM2 PER DAY
     Route: 065
     Dates: start: 20050304, end: 20050308
  2. TAXOL [Concomitant]
     Route: 065
     Dates: start: 20040701, end: 20041201
  3. CARBOPLATIN [Concomitant]
     Route: 065
     Dates: start: 20040701, end: 20041201
  4. FORTECORTIN [Concomitant]
     Dosage: 4MG TWICE PER DAY
     Route: 042
     Dates: start: 20050304, end: 20050308
  5. KEVATRIL [Concomitant]
     Dosage: 1MG PER DAY
     Route: 065
     Dates: start: 20050304, end: 20050308

REACTIONS (2)
  - LYMPHOCYTOSIS [None]
  - THROMBOCYTOPENIA [None]
